FAERS Safety Report 5513006-6 (Version None)
Quarter: 2007Q4

REPORT INFORMATION
  Report Type: 
  Country: None (occurrence: None)
  Receive Date: 20071112
  Receipt Date: 20071106
  Transmission Date: 20080405
  Serious: Yes (Other)
  Sender: FDA-Public Use
  Company Number: GB-AVENTIS-200720256GDDC

PATIENT
  Age: 61 Year
  Sex: Female

DRUGS (2)
  1. LANTUS [Suspect]
     Dates: start: 20060301
  2. NOVORAPID [Concomitant]
     Dates: start: 20070401

REACTIONS (2)
  - CHEST PAIN [None]
  - HYPERHIDROSIS [None]
